FAERS Safety Report 4609387-8 (Version None)
Quarter: 2005Q1

REPORT INFORMATION
  Report Type: 
  Country: None (occurrence: None)
  Receive Date: 20050314
  Receipt Date: 20050302
  Transmission Date: 20050727
  Serious: Yes (Other)
  Sender: FDA-Public Use
  Company Number: 083-20785-05030178

PATIENT
  Age: 66 Year
  Sex: Male

DRUGS (9)
  1. THALOMID [Suspect]
     Indication: MULTIPLE MYELOMA
     Dosage: 100-400MG, QD, ORAL
     Route: 048
  2. DEXAMETHASONE [Suspect]
     Indication: MULTIPLE MYELOMA
     Dosage: 40MG X4D QMONTHLY, QD
  3. MELPHALAN (MELPHALAN) [Concomitant]
  4. PREDNISONE [Concomitant]
  5. DIPHOSPHONATES (ALENDRONATE SODIUM) [Concomitant]
  6. RADIATION THERAPY [Concomitant]
  7. CYCLOPHOSPHAMIDE [Concomitant]
  8. VINCRISTINE [Concomitant]
  9. ADRIAMYCIN PFS [Concomitant]

REACTIONS (3)
  - CEREBRAL HAEMORRHAGE [None]
  - HAEMOGLOBIN DECREASED [None]
  - THERAPY NON-RESPONDER [None]
